FAERS Safety Report 9416520 (Version 1)
Quarter: 2013Q3

REPORT INFORMATION
  Report Type: Spontaneous
  Country: US (occurrence: US)
  Receive Date: 20130724
  Receipt Date: 20130724
  Transmission Date: 20140515
  Serious: Yes (Other)
  Sender: FDA-Public Use
  Company Number: US-JNJFOC-20130707671

PATIENT
  Age: 80 Year
  Sex: Male
  Weight: 58.97 kg

DRUGS (1)
  1. LEVOFLOXACIN [Suspect]
     Indication: INFECTION
     Dosage: AROUND THE MIDDLE OF THE MONTH; 5 DAY COURSE
     Route: 048
     Dates: start: 201301, end: 201301

REACTIONS (6)
  - Tendon rupture [Not Recovered/Not Resolved]
  - Condition aggravated [Not Recovered/Not Resolved]
  - Body height decreased [Recovered/Resolved]
  - Muscular weakness [Not Recovered/Not Resolved]
  - Weight decreased [Unknown]
  - Pain in extremity [Not Recovered/Not Resolved]
